FAERS Safety Report 7052605-X (Version None)
Quarter: 2010Q4

REPORT INFORMATION
  Report Type: 
  Country: None (occurrence: None)
  Receive Date: 20101019
  Receipt Date: 20101014
  Transmission Date: 20110411
  Serious: Yes (Other)
  Sender: FDA-Public Use
  Company Number: JP-PFIZER INC-2010116997

PATIENT
  Age: 29 Year
  Sex: Female

DRUGS (3)
  1. ZITHROMAC [Suspect]
     Indication: BRONCHITIS
     Dosage: UNK
     Route: 048
     Dates: start: 20100914, end: 20100915
  2. RESPLEN [Concomitant]
     Dosage: UNK
     Route: 048
     Dates: start: 20100914
  3. BAKUMONDOUTO [Concomitant]
     Dosage: UNK
     Route: 048
     Dates: start: 20100914

REACTIONS (2)
  - DEAFNESS [None]
  - VISUAL FIELD DEFECT [None]
